FAERS Safety Report 5399556-4 (Version None)
Quarter: 2007Q3

REPORT INFORMATION
  Report Type: 
  Country: None (occurrence: None)
  Receive Date: 20070727
  Receipt Date: 20070716
  Transmission Date: 20080115
  Serious: Yes (Hospitalization, Other)
  Sender: FDA-Public Use
  Company Number: US-PFIZER INC-2007058288

PATIENT
  Sex: Male
  Weight: 98.9 kg

DRUGS (3)
  1. XANAX [Suspect]
     Indication: PANIC DISORDER
  2. KLONOPIN [Suspect]
     Indication: PANIC DISORDER
     Dates: start: 20070714, end: 20070714
  3. LEXAPRO [Concomitant]

REACTIONS (9)
  - DIARRHOEA [None]
  - DISORIENTATION [None]
  - FEELING ABNORMAL [None]
  - GLOSSODYNIA [None]
  - INCOHERENT [None]
  - JOINT INJURY [None]
  - LOSS OF CONSCIOUSNESS [None]
  - MALAISE [None]
  - MENTAL IMPAIRMENT [None]
